FAERS Safety Report 7310735-9 (Version None)
Quarter: 2011Q1

REPORT INFORMATION
  Report Type: 
  Country: None (occurrence: None)
  Receive Date: 20110224
  Receipt Date: 20110215
  Transmission Date: 20110831
  Serious: Yes (Other)
  Sender: FDA-Public Use
  Company Number: PHHY2006US02687

PATIENT
  Sex: Female
  Weight: 125 kg

DRUGS (8)
  1. EXJADE [Suspect]
     Dosage: 350 MG, QD
     Route: 048
  2. MULTAQ [Concomitant]
     Dosage: UNK
  3. FOLIC ACID [Concomitant]
     Dosage: 2 MG, QD
  4. DURAGESIC-50 [Concomitant]
     Dosage: 12 UG, EVERY 72 HOURS
  5. EXJADE [Suspect]
     Dosage: 250 MG, EVERY DAY
     Route: 048
     Dates: start: 20100128
  6. SYNTHROID [Concomitant]
     Dosage: 175 UG, UNK
  7. CALCIUM [Concomitant]
  8. EXJADE [Suspect]
     Indication: MYELODYSPLASTIC SYNDROME
     Dosage: 1250 MG, DAILY
     Route: 048
     Dates: start: 20060609

REACTIONS (4)
  - RASH [None]
  - FAECES DISCOLOURED [None]
  - NATURAL KILLER-CELL LYMPHOBLASTIC LYMPHOMA [None]
  - MALAISE [None]
